FAERS Safety Report 10186813 (Version 1)
Quarter: 2014Q2

REPORT INFORMATION
  Report Type: Spontaneous
  Country: US (occurrence: US)
  Receive Date: 20140521
  Receipt Date: 20140521
  Transmission Date: 20141212
  Serious: No
  Sender: FDA-Public Use
  Company Number: US-009507513-1405USA010302

PATIENT
  Sex: 0

DRUGS (2)
  1. SINGULAIR [Suspect]
     Indication: SEASONAL ALLERGY
     Dosage: UNK
     Route: 048
  2. ZYRTEC [Concomitant]
     Indication: SEASONAL ALLERGY

REACTIONS (1)
  - Drug ineffective [Not Recovered/Not Resolved]
